FAERS Safety Report 4567339-0 (Version None)
Quarter: 2005Q1

REPORT INFORMATION
  Report Type: 
  Country: None (occurrence: None)
  Receive Date: 20050127
  Receipt Date: 20050112
  Transmission Date: 20050727
  Serious: Yes (Death)
  Sender: FDA-Public Use
  Company Number: S05-SWE-00274-01

PATIENT
  Age: 36 Year
  Sex: Male

DRUGS (6)
  1. ESCITALOPRAM OXALATE [Suspect]
     Indication: NEUROSIS
     Dosage: 20 MG QD PO
     Route: 048
     Dates: start: 20040701, end: 20040909
  2. CISORDINOL - SLOW RELEASE (ZUCLOPENTHIXOL DECANOATE) [Suspect]
     Indication: SCHIZOPHRENIA
     Dosage: 5 MG QD PO
     Route: 048
     Dates: start: 19890101, end: 20040909
  3. CLOZAPINE [Suspect]
     Indication: SCHIZOPHRENIA
     Dosage: 100 MG Q4HR PO
     Route: 048
     Dates: start: 19940101, end: 20040909
  4. ATARAX [Concomitant]
  5. AKINETON [Concomitant]
  6. STESOLID (DIAZEPAM) [Concomitant]

REACTIONS (8)
  - BRONCHIAL OEDEMA [None]
  - BRONCHITIS [None]
  - CARDIOMEGALY [None]
  - CARDIOPULMONARY FAILURE [None]
  - CORONARY ARTERY ATHEROSCLEROSIS [None]
  - LUNG DISORDER [None]
  - SUDDEN DEATH [None]
  - TRACHEAL OEDEMA [None]
